FAERS Safety Report 25981421 (Version 2)
Quarter: 2025Q4

REPORT INFORMATION
  Report Type: Report from Study
  Country: US (occurrence: US)
  Receive Date: 20251030
  Receipt Date: 20251204
  Transmission Date: 20260117
  Serious: Yes (Death, Other)
  Sender: MERZ
  Company Number: US-MERZ PHARMACEUTICALS LLC-ACO_179542_2025

PATIENT

DRUGS (3)
  1. INBRIJA [Suspect]
     Active Substance: LEVODOPA
     Indication: On and off phenomenon
     Dosage: 2 DOSAGE FORM, PRN (THREE TIMES A DAY AS NEEDED)
     Dates: start: 20250917, end: 20251023
  2. METHYLPHENIDATE [Concomitant]
     Active Substance: METHYLPHENIDATE
     Indication: Product used for unknown indication
     Dosage: 5 MILLIGRAM
     Route: 065
  3. VITAMIN D NOS [Concomitant]
     Active Substance: CHOLECALCIFEROL\ERGOCALCIFEROL
     Indication: Product used for unknown indication
     Dosage: 1000 INTERNATIONAL UNIT
     Route: 065

REACTIONS (1)
  - Death [Fatal]

NARRATIVE: CASE EVENT DATE: 20251023
